FAERS Safety Report 5262273-5 (Version None)
Quarter: 2007Q1

REPORT INFORMATION
  Report Type: 
  Country: None (occurrence: None)
  Receive Date: 20070308
  Receipt Date: 20070308
  Transmission Date: 20070707
  Serious: Yes (Other)
  Sender: FDA-Public Use
  Company Number: None

PATIENT
  Age: 42 Year
  Sex: Female
  Weight: 53.978 kg

DRUGS (1)
  1. TAXOTERE [Suspect]
     Indication: BREAST CANCER
     Dosage: 113 MG EVERY 4 WEEKS IV
     Route: 042
     Dates: start: 20061201, end: 20070307

REACTIONS (3)
  - DYSPNOEA [None]
  - ERYTHEMA [None]
  - FLUSHING [None]
